FAERS Safety Report 7906942-4 (Version None)
Quarter: 2011Q4

REPORT INFORMATION
  Report Type: 
  Country: None (occurrence: None)
  Receive Date: 20111109
  Receipt Date: 20111109
  Transmission Date: 20120403
  Serious: No
  Sender: FDA-Public Use
  Company Number: None

PATIENT
  Sex: Male
  Weight: 83.9154 kg

DRUGS (1)
  1. MUCINEX [Suspect]
     Indication: INFLUENZA LIKE ILLNESS
     Dosage: 20 ML EVERY 4 HRS ORAL   5TH + 6TH
     Route: 048

REACTIONS (3)
  - STOMATITIS [None]
  - DYSGEUSIA [None]
  - PRODUCT OUTER PACKAGING ISSUE [None]
